FAERS Safety Report 6511071-0 (Version None)
Quarter: 2009Q4

REPORT INFORMATION
  Report Type: 
  Country: None (occurrence: None)
  Receive Date: 20091222
  Receipt Date: 20090220
  Transmission Date: 20100525
  Serious: No
  Sender: FDA-Public Use
  Company Number: US-ASTRAZENECA-2009UW04862

PATIENT
  Age: 67 Year
  Sex: Male

DRUGS (12)
  1. CRESTOR [Suspect]
     Route: 048
     Dates: start: 20080101
  2. CRESTOR [Suspect]
     Route: 048
  3. PLAVIX [Concomitant]
  4. METFORMIN HCL [Concomitant]
  5. ZETIA [Concomitant]
  6. AMITRIPTYLINE [Concomitant]
  7. JANUVIA [Concomitant]
  8. QUINAPRIL [Concomitant]
  9. AMLODIPINE [Concomitant]
  10. FLOMAX [Concomitant]
  11. LANTUS [Concomitant]
  12. HUMALOG [Concomitant]

REACTIONS (3)
  - DYSSTASIA [None]
  - FALL [None]
  - MUSCULAR WEAKNESS [None]
